FAERS Safety Report 11302443 (Version 1)
Quarter: 2015Q3

REPORT INFORMATION
  Report Type: Spontaneous
  Country: FR (occurrence: FR)
  Receive Date: 20150723
  Receipt Date: 20150723
  Transmission Date: 20151125
  Serious: Yes (Other)
  Sender: FDA-Public Use
  Company Number: FR-009507513-1507FRA003864

PATIENT
  Sex: Male
  Weight: 85 kg

DRUGS (1)
  1. GRAZAX [Suspect]
     Active Substance: PHLEUM PRATENSE POLLEN
     Indication: PRODUCT USED FOR UNKNOWN INDICATION
     Dosage: 75000 SQ-T, DAILY
     Route: 060
     Dates: start: 20150105, end: 20150411

REACTIONS (2)
  - Aphthous ulcer [Recovered/Resolved]
  - Asthma exercise induced [Not Recovered/Not Resolved]

NARRATIVE: CASE EVENT DATE: 2015
